FAERS Safety Report 11169660 (Version 1)
Quarter: 2015Q2

REPORT INFORMATION
  Report Type: Spontaneous
  Country: US (occurrence: US)
  Receive Date: 20150605
  Receipt Date: 20150605
  Transmission Date: 20150821
  Serious: Yes (Death)
  Sender: FDA-Public Use
  Company Number: US-JNJFOC-20150520462

PATIENT
  Age: 95 Year
  Sex: Female
  Weight: 61.69 kg

DRUGS (1)
  1. SUDAFED CONGESTION MS [Suspect]
     Active Substance: PSEUDOEPHEDRINE HYDROCHLORIDE
     Indication: SINUS DISORDER
     Route: 048

REACTIONS (1)
  - Death [Fatal]
